FAERS Safety Report 9846674 (Version 2)
Quarter: 2014Q2

REPORT INFORMATION
  Report Type: Spontaneous
  Country: US (occurrence: US)
  Receive Date: 20140127
  Receipt Date: 20140425
  Transmission Date: 20141212
  Serious: Yes (Hospitalization, Other)
  Sender: FDA-Public Use
  Company Number: US-GILEAD-2014-0093093

PATIENT
  Sex: Female

DRUGS (4)
  1. LETAIRIS [Suspect]
     Indication: PULMONARY ARTERIAL HYPERTENSION
     Dosage: 5 MG, UNK
     Route: 065
     Dates: start: 20110406
  2. LETAIRIS [Suspect]
     Dosage: 5 MG, QD
     Route: 065
     Dates: start: 20130201
  3. LETAIRIS [Suspect]
     Dosage: 5 MG, QD
     Route: 065
     Dates: start: 20140306
  4. INSULIN [Suspect]
     Indication: PRODUCT USED FOR UNKNOWN INDICATION
     Route: 065

REACTIONS (3)
  - Acute respiratory failure [Not Recovered/Not Resolved]
  - Unevaluable event [Unknown]
  - Joint swelling [Unknown]
